FAERS Safety Report 10334961 (Version 2)
Quarter: 2014Q3

REPORT INFORMATION
  Report Type: Spontaneous
  Country: US (occurrence: None)
  Receive Date: 20140721
  Receipt Date: 20140804
  Transmission Date: 20150326
  Serious: Yes (Other)
  Sender: FDA-Public Use
  Company Number: 2014-US-008692

PATIENT
  Age: 60 Year
  Sex: Female
  Weight: 68 kg

DRUGS (12)
  1. REGLAN (METOCLOPRAMIDE HYDROCHLORIDE) [Concomitant]
  2. ZYRTEC-D (CETIRIZINE HYDROCHLORIDE, PSEUDOEPHEDRINE HYDROCHLORIDE) [Concomitant]
  3. MELATONIN (MELATONIN) [Concomitant]
     Active Substance: MELATONIN
  4. PRIMIDONE (PRIMIDONE) [Concomitant]
  5. XYREM [Suspect]
     Active Substance: SODIUM OXYBATE
     Indication: NARCOLEPSY
     Route: 048
     Dates: start: 200710, end: 2007
  6. LYRICA [Concomitant]
     Active Substance: PREGABALIN
  7. NEXIUM [Concomitant]
     Active Substance: ESOMEPRAZOLE MAGNESIUM
  8. XYREM [Suspect]
     Active Substance: SODIUM OXYBATE
     Indication: SOMNOLENCE
     Route: 048
     Dates: start: 200710, end: 2007
  9. NAPROSYN [Suspect]
     Active Substance: NAPROXEN
     Indication: PRODUCT USED FOR UNKNOWN INDICATION
     Dates: end: 201406
  10. LASIX [Concomitant]
     Active Substance: FUROSEMIDE
  11. POTASSIUM (POTASSIUM) [Concomitant]
     Active Substance: POTASSIUM
  12. MAGNESIUM (MAGNSESIUM) [Concomitant]

REACTIONS (6)
  - Local swelling [None]
  - Oedema [None]
  - Contusion [None]
  - Fall [None]
  - Foot fracture [None]
  - Pain in extremity [None]

NARRATIVE: CASE EVENT DATE: 201406
